FAERS Safety Report 6525016-0 (Version None)
Quarter: 2010Q1

REPORT INFORMATION
  Report Type: 
  Country: None (occurrence: None)
  Receive Date: 20100104
  Receipt Date: 20091221
  Transmission Date: 20100710
  Serious: Yes (Other)
  Sender: FDA-Public Use
  Company Number: JP-PFIZER INC-2009315237

PATIENT
  Sex: Female

DRUGS (1)
  1. DETRUSITOL [Suspect]
     Dosage: 2 MG, 1X/DAY AT NIGHT
     Route: 048

REACTIONS (1)
  - BLOOD PRESSURE INCREASED [None]
